FAERS Safety Report 20709739 (Version 3)
Quarter: 2022Q3

REPORT INFORMATION
  Report Type: Report from Study
  Country: FR (occurrence: FR)
  Receive Date: 20220414
  Receipt Date: 20220915
  Transmission Date: 20221027
  Serious: Yes (Life-Threatening, Hospitalization, Other)
  Sender: FDA-Public Use
  Company Number: FR-BRISTOL-MYERS SQUIBB COMPANY-2022-017147

PATIENT
  Age: 70 Year
  Sex: Male
  Weight: 84 kg

DRUGS (18)
  1. AZACITIDINE [Suspect]
     Active Substance: AZACITIDINE
     Indication: Myelodysplastic syndrome
     Dosage: ON 7 DAYS WITHIN THE FIRST 9 CALENDAR DAYS PER 28-DAY CYCLE
     Route: 058
     Dates: start: 20210816, end: 20220308
  2. AZACITIDINE [Suspect]
     Active Substance: AZACITIDINE
     Dosage: ON 7 DAYS WITHIN THE FIRST 9 CALENDAR DAYS PER 28-DAY CYCLE
     Route: 058
     Dates: start: 20220425
  3. VENETOCLAX [Suspect]
     Active Substance: VENETOCLAX
     Indication: Myelodysplastic syndrome
     Dosage: DAYS 1 - 14 OF EACH 28-DAY CYCLE (400 MG,1 IN 1 D)
     Route: 048
     Dates: start: 20210816, end: 20220313
  4. VENETOCLAX [Suspect]
     Active Substance: VENETOCLAX
     Dosage: DAYS 1 - 14 OF EACH 28-DAY CYCLE (400 MG,1 IN 1 D)
     Route: 048
     Dates: start: 20220425
  5. VALACYCLOVIR HYDROCHLORIDE [Concomitant]
     Active Substance: VALACYCLOVIR HYDROCHLORIDE
     Indication: Infection prophylaxis
     Route: 048
  6. LEUCOVORIN CALCIUM [Concomitant]
     Active Substance: LEUCOVORIN CALCIUM
     Indication: Infection prophylaxis
     Dosage: 1 IN 1 WK
     Route: 048
     Dates: start: 2020
  7. DEFERASIROX [Concomitant]
     Active Substance: DEFERASIROX
     Indication: Prophylaxis
     Dosage: 3 IN 1 D
     Route: 048
  8. DEFERASIROX [Concomitant]
     Active Substance: DEFERASIROX
     Dosage: 3 IN 1 D
     Route: 048
  9. ATOVAQUONE [Concomitant]
     Active Substance: ATOVAQUONE
     Indication: Infection prophylaxis
     Dosage: 1 IN 1 D
     Route: 048
  10. ATOVAQUONE [Concomitant]
     Active Substance: ATOVAQUONE
     Dosage: 2 CAM
     Dates: start: 20211026
  11. EXJADE [Concomitant]
     Active Substance: DEFERASIROX
     Indication: Prophylaxis
     Dosage: 3 IN 1 D
     Route: 048
  12. POSACONAZOLE [Concomitant]
     Active Substance: POSACONAZOLE
     Indication: Infection prophylaxis
     Dosage: ONCE
     Route: 048
     Dates: start: 20210917, end: 20210917
  13. POSACONAZOLE [Concomitant]
     Active Substance: POSACONAZOLE
     Dosage: 1 IN 1 D
     Route: 048
     Dates: start: 20210918
  14. FLUVASTATINE [FLUVASTATIN] [Concomitant]
     Indication: Coronary artery disease
     Dosage: 1 IN 1 D
     Route: 048
     Dates: start: 2017
  15. PENICILLIN V [Concomitant]
     Active Substance: PENICILLIN V
     Indication: Infection prophylaxis
     Dosage: 1 IN 1 D
     Route: 048
     Dates: start: 20211026
  16. CLAVULANIC ACID [Concomitant]
     Active Substance: CLAVULANIC ACID
     Indication: Sepsis
     Route: 048
     Dates: start: 20220320, end: 20220328
  17. CIPROFLOXACIN [Concomitant]
     Active Substance: CIPROFLOXACIN
     Indication: Sepsis
     Route: 048
     Dates: start: 20220320, end: 20220328
  18. AMOXICILLIN [Concomitant]
     Active Substance: AMOXICILLIN
     Indication: Sepsis
     Route: 048
     Dates: start: 20220320, end: 20220328

REACTIONS (1)
  - Sepsis [Recovered/Resolved]

NARRATIVE: CASE EVENT DATE: 20220324
